FAERS Safety Report 25265652 (Version 2)
Quarter: 2025Q2

REPORT INFORMATION
  Report Type: Spontaneous
  Country: US (occurrence: US)
  Receive Date: 20250503
  Receipt Date: 20250604
  Transmission Date: 20250716
  Serious: No
  Sender: MACLEODS
  Company Number: US-MACLEODS PHARMA-MAC2025052817

PATIENT

DRUGS (1)
  1. LEVOTHYROXINE [Suspect]
     Active Substance: LEVOTHYROXINE
     Indication: Hypothyroidism
     Dosage: RX NUMBER:1465116, THREE TABLETS - ONE EACH ON  PREVIOUS SATURDAY, SUNDAY, AND MONDAY
     Route: 048
     Dates: start: 20250419

REACTIONS (4)
  - Skin swelling [Recovered/Resolved]
  - Swelling [Recovered/Resolved]
  - Sensitive skin [Recovered/Resolved]
  - Hypersensitivity [Recovered/Resolved]

NARRATIVE: CASE EVENT DATE: 20250421
